FAERS Safety Report 11132867 (Version 2)
Quarter: 2015Q2

REPORT INFORMATION
  Report Type: Spontaneous
  Country: US (occurrence: US)
  Receive Date: 20150522
  Receipt Date: 20150603
  Transmission Date: 20150821
  Serious: Yes (Other)
  Sender: FDA-Public Use
  Company Number: US-PFIZER INC-2015170368

PATIENT
  Age: 60 Year
  Sex: Female

DRUGS (2)
  1. IBRANCE [Suspect]
     Active Substance: PALBOCICLIB
     Indication: BREAST CANCER
     Dosage: 125 MG, CYCLIC (DAY1-DAY21 EVERY 28DAY)
     Route: 048
     Dates: start: 20150410, end: 20150510
  2. IBRANCE [Suspect]
     Active Substance: PALBOCICLIB
     Dosage: UNK

REACTIONS (5)
  - Mood altered [Unknown]
  - Fatigue [Unknown]
  - Crying [Unknown]
  - Hot flush [Unknown]
  - Neutropenia [Unknown]

NARRATIVE: CASE EVENT DATE: 2015
